FAERS Safety Report 13613627 (Version 1)
Quarter: 2017Q2

REPORT INFORMATION
  Report Type: Report from Study
  Country: FR (occurrence: FR)
  Receive Date: 20170605
  Receipt Date: 20170605
  Transmission Date: 20170830
  Serious: Yes (Hospitalization)
  Sender: FDA-Public Use
  Company Number: FR-ASTRAZENECA-2017SE57175

PATIENT
  Age: 26700 Day
  Sex: Female
  Weight: 65 kg

DRUGS (3)
  1. AZD2014 [Suspect]
     Active Substance: INVESTIGATIONAL PRODUCT
     Indication: ENDOMETRIAL ADENOCARCINOMA
     Route: 048
     Dates: start: 20170526
  2. ANASTROZOLE. [Suspect]
     Active Substance: ANASTROZOLE
     Indication: ENDOMETRIAL ADENOCARCINOMA
     Route: 048
     Dates: start: 20170526, end: 20170528
  3. BISOPROLOL/HYDROCHLOROTHIAZIDE [Concomitant]
     Active Substance: BISOPROLOL FUMARATE\HYDROCHLOROTHIAZIDE
     Indication: ARRHYTHMIA
     Dates: end: 20170528

REACTIONS (1)
  - Hypotension [Recovered/Resolved]

NARRATIVE: CASE EVENT DATE: 20170528
